FAERS Safety Report 16575046 (Version 1)
Quarter: 2019Q3

REPORT INFORMATION
  Report Type: Report from Study
  Country: None (occurrence: IT)
  Receive Date: 20190715
  Receipt Date: 20190715
  Transmission Date: 20191004
  Serious: Yes (Hospitalization)
  Sender: FDA-Public Use
  Company Number: IT-ABBVIE-19K-083-2853673-00

PATIENT
  Age: 82 Year
  Sex: Female

DRUGS (1)
  1. DUODOPA [Suspect]
     Active Substance: CARBIDOPA\LEVODOPA
     Indication: PARKINSON^S DISEASE
     Dosage: MD 10(+3)??CR 3,5??ED 3,1
     Route: 050
     Dates: start: 20180619, end: 20190708

REACTIONS (4)
  - Electrolyte imbalance [Unknown]
  - Hyperpyrexia [Unknown]
  - Anaemia [Unknown]
  - Vomiting [Unknown]

NARRATIVE: CASE EVENT DATE: 201907
